FAERS Safety Report 21962926 (Version 2)
Quarter: 2023Q1

REPORT INFORMATION
  Report Type: Spontaneous
  Country: US (occurrence: US)
  Receive Date: 20230207
  Receipt Date: 20230216
  Transmission Date: 20230417
  Serious: No
  Sender: FDA-Public Use
  Company Number: US-TRIS PHARMA, INC.-23US010690

PATIENT

DRUGS (1)
  1. DYANAVEL XR [Suspect]
     Active Substance: AMPHETAMINE
     Indication: Product used for unknown indication
     Dosage: 2 MILLILITRE, QD
     Route: 048
     Dates: start: 20210818

REACTIONS (3)
  - Product packaging quantity issue [Unknown]
  - Product dispensing error [Unknown]
  - Decreased appetite [Unknown]
